FAERS Safety Report 8506970-4 (Version None)
Quarter: 2012Q3

REPORT INFORMATION
  Report Type: 
  Country: None (occurrence: None)
  Receive Date: 20120712
  Receipt Date: 20120702
  Transmission Date: 20120928
  Serious: Yes (Death, Hospitalization)
  Sender: FDA-Public Use
  Company Number: GR-MSD-2011SP035718

PATIENT

DRUGS (33)
  1. POSACONAZOLE [Interacting]
     Indication: PRODUCT USED FOR UNKNOWN INDICATION
     Dosage: 300 MG, QD
     Route: 048
     Dates: start: 20110628, end: 20110725
  2. GANCICLOVIR [Concomitant]
     Indication: CYTOMEGALOVIRUS INFECTION
     Dosage: 320 MG, BID
     Route: 042
     Dates: start: 20110630, end: 20110708
  3. CYANOCOBALAMIN (+) PYRIDOXINE HYDROCHLORIDE (+) RIBOFLAVIN (+) THIAMIN [Concomitant]
     Indication: SUPPORTIVE CARE
     Dosage: UNK UNK, BID
     Route: 048
     Dates: start: 20110708, end: 20110727
  4. MAGNESIUM SULFATE [Concomitant]
     Indication: HYPOMAGNESAEMIA
     Dosage: MAGNESIUM SULFATE 25%
     Route: 042
     Dates: start: 20110608, end: 20110708
  5. ALUMINUM HYDROXIDE (+) MAGNESIUM HYDROXIDE (+) SIMETHICONE [Concomitant]
     Indication: ABDOMINAL PAIN UPPER
     Dosage: 450 MG, ONCE
     Route: 048
     Dates: start: 20110628, end: 20110628
  6. SODIUM CHLORIDE [Concomitant]
     Indication: FLUID REPLACEMENT
     Dosage: 1000 ML, BID
     Route: 042
     Dates: start: 20110602, end: 20110629
  7. METOCLOPRAMIDE [Concomitant]
     Dosage: 5 MG, TID
     Route: 042
     Dates: start: 20110701, end: 20110708
  8. FOLIC ACID [Concomitant]
     Indication: PROPHYLAXIS
     Dosage: 5 A?G, BIW
     Route: 048
     Dates: start: 20110710, end: 20110727
  9. POTASSIUM CHLORIDE [Concomitant]
     Indication: HYPOKALAEMIA
     Dosage: POTASSIUM CHLORIDE 10%
     Route: 042
     Dates: start: 20110608, end: 20110708
  10. ALLOPURINOL [Concomitant]
     Indication: HYPERURICAEMIA
     Dosage: 300 MG, QD
     Route: 048
     Dates: start: 20110704, end: 20110708
  11. SULFAMETHOXAZOLE AND TRIMETHOPRIM [Suspect]
     Indication: ANTIFUNGAL PROPHYLAXIS
  12. ONDANSETRON [Concomitant]
     Indication: NAUSEA
     Dosage: 8 MG, QID
     Route: 042
     Dates: start: 20110621, end: 20110628
  13. VANCOMYCIN [Concomitant]
     Indication: PYREXIA
     Dosage: 1 G, BID
     Route: 042
     Dates: start: 20110621, end: 20110708
  14. ACYCLOVIR [Concomitant]
     Indication: ANTIVIRAL PROPHYLAXIS
     Dosage: 400 MG, BID
     Route: 048
     Dates: start: 20110627, end: 20110630
  15. SODIUM CHLORIDE [Concomitant]
     Dosage: 1000 ML, QD
     Route: 042
     Dates: start: 20110630, end: 20110708
  16. NITRENDIPINE [Concomitant]
     Indication: HYPERTENSION
     Dosage: FREQUENCY: TWICE
     Route: 048
     Dates: start: 20110627, end: 20110629
  17. CYCLOSPORINE [Interacting]
     Dosage: UNK UNK, UNKNOWN
     Route: 042
     Dates: start: 20110608, end: 20110625
  18. METOCLOPRAMIDE [Concomitant]
     Indication: NAUSEA
     Dosage: 10 MG, TID
     Route: 042
     Dates: start: 20110606, end: 20110701
  19. BEBETINA [Concomitant]
     Indication: STOMATITIS
     Dosage: 1 G, PRN
     Route: 042
     Dates: start: 20110617, end: 20110708
  20. PRILOSEC [Concomitant]
     Indication: GASTRITIS PROPHYLAXIS
     Dosage: 20 MG, QD
     Route: 048
     Dates: start: 20110627, end: 20110701
  21. BEBETINA [Concomitant]
     Indication: HEADACHE
     Dosage: 1000 MG, PRN
     Route: 042
     Dates: start: 20110611, end: 20110630
  22. CALCIUM GLUCONATE [Concomitant]
     Indication: HYPOCALCAEMIA
     Dosage: CALCIUM GLUCONATE 5%
     Route: 042
     Dates: start: 20110612, end: 20110708
  23. PRILOSEC [Concomitant]
     Dosage: 20 MG, QD
     Route: 048
     Dates: start: 20110709
  24. CYCLOSPORINE [Interacting]
     Indication: PROPHYLAXIS AGAINST GRAFT VERSUS HOST DISEASE
     Dosage: 75 MG IN THE MORNING AND 50 MG AT NIGHT
     Route: 048
     Dates: start: 20110626, end: 20110730
  25. CYCLOSPORINE [Interacting]
     Dosage: 50 MG IN THE MORNING AND 50 MG AT NIGHT
     Route: 048
     Dates: start: 20110731
  26. PIPERACILLIN AND TAZOBACTAM [Concomitant]
     Indication: PYREXIA
     Dosage: 4.5 G, TID
     Route: 042
     Dates: start: 20110621, end: 20110708
  27. MK-0805 [Concomitant]
     Indication: OFF LABEL USE
     Dosage: 20 MG, PRN
     Route: 042
     Dates: start: 20110610, end: 20110629
  28. DEXTROSE [Concomitant]
     Indication: FLUID REPLACEMENT
     Dosage: 500 ML, QD
     Route: 042
     Dates: start: 20110702, end: 20110705
  29. SULFAMETHOXAZOLE AND TRIMETHOPRIM [Suspect]
     Indication: TOXOPLASMOSIS PROPHYLAXIS
     Dosage: 1920 MG, BIW
     Route: 048
     Dates: start: 20110710, end: 20110727
  30. PROPOXYPHENE HYDROCHLORIDE [Concomitant]
     Indication: STOMATITIS
     Dosage: 75 MG, PRN
     Route: 042
     Dates: start: 20110621, end: 20110708
  31. ACYCLOVIR [Concomitant]
     Dosage: 400 MG, BID
     Route: 048
     Dates: start: 20110708
  32. PHYTONADIONE [Concomitant]
     Indication: SUPPORTIVE CARE
     Dosage: 10 MG, BIW
     Route: 042
     Dates: start: 20110606, end: 20110707
  33. PRILOSEC [Concomitant]
     Dosage: 40 MG, QD
     Route: 042
     Dates: start: 20110701, end: 20110708

REACTIONS (2)
  - BLOOD CREATINE INCREASED [None]
  - DRUG INTERACTION [None]
